FAERS Safety Report 7002127-7 (Version None)
Quarter: 2010Q3

REPORT INFORMATION
  Report Type: 
  Country: None (occurrence: None)
  Receive Date: 20100920
  Receipt Date: 20090903
  Transmission Date: 20110219
  Serious: Yes (Other)
  Sender: FDA-Public Use
  Company Number: US-ASTRAZENECA-2007UW27340

PATIENT
  Age: 589 Month
  Sex: Female
  Weight: 66.2 kg

DRUGS (11)
  1. SEROQUEL [Suspect]
     Indication: BIPOLAR DISORDER
     Dosage: 100-400 MG
     Route: 048
     Dates: start: 19990617, end: 20070807
  2. SEROQUEL [Suspect]
     Indication: DEPRESSION
     Dosage: 100-400 MG
     Route: 048
     Dates: start: 19990617, end: 20070807
  3. SEROQUEL [Suspect]
     Dosage: 25MG, 200MG AND 300MG
     Route: 048
     Dates: start: 20040701, end: 20070901
  4. SEROQUEL [Suspect]
     Dosage: 25MG, 200MG AND 300MG
     Route: 048
     Dates: start: 20040701, end: 20070901
  5. HALDOL [Concomitant]
     Route: 048
     Dates: start: 20060822
  6. RISPERDAL [Concomitant]
     Route: 048
     Dates: start: 20040615
  7. RISPERDAL [Concomitant]
  8. BENZTROPINE MESYLATE [Concomitant]
  9. ALPRAZOLAM [Concomitant]
     Dates: start: 20010101
  10. LISINOPRIL [Concomitant]
     Route: 048
     Dates: start: 20050912
  11. METFORMIN [Concomitant]
     Route: 048
     Dates: start: 20050912

REACTIONS (4)
  - BLOOD CHOLESTEROL INCREASED [None]
  - DIABETES MELLITUS [None]
  - PANCREATITIS [None]
  - TYPE 2 DIABETES MELLITUS [None]
